FAERS Safety Report 23685364 (Version 3)
Quarter: 2024Q2

REPORT INFORMATION
  Report Type: Spontaneous
  Country: NL (occurrence: NL)
  Receive Date: 20240329
  Receipt Date: 20240527
  Transmission Date: 20240715
  Serious: Yes (Hospitalization, Other)
  Sender: FDA-Public Use
  Company Number: NL-SA-2020SA188494

PATIENT
  Age: 46 Year
  Sex: Female

DRUGS (11)
  1. MESALAMINE [Suspect]
     Active Substance: MESALAMINE
     Indication: Product used for unknown indication
     Dosage: UNK
     Route: 065
     Dates: start: 20231215, end: 20240129
  2. COVID-19 VACCINE NOS [Suspect]
     Active Substance: COVID-19 VACCINE
     Indication: Immunisation
     Dosage: UNK
     Route: 065
     Dates: end: 20210620
  3. TERIFLUNOMIDE [Suspect]
     Active Substance: TERIFLUNOMIDE
     Indication: Relapsing-remitting multiple sclerosis
     Dosage: 14 MILLIGRAM, ONCE A DAY
     Route: 048
     Dates: start: 201711
  4. TERIFLUNOMIDE [Suspect]
     Active Substance: TERIFLUNOMIDE
     Dosage: 14 MILLIGRAM, ONCE A DAY
     Route: 048
     Dates: start: 20200702
  5. MINERALS\VITAMINS [Concomitant]
     Active Substance: MINERALS\VITAMINS
     Indication: Macular degeneration
     Dosage: UNK
     Route: 065
  6. CHOLECALCIFEROL [Concomitant]
     Active Substance: CHOLECALCIFEROL
     Indication: Vitamin supplementation
     Dosage: UNK
     Route: 048
     Dates: start: 20200626
  7. MIRENA [Concomitant]
     Active Substance: LEVONORGESTREL
     Indication: Product used for unknown indication
     Dosage: UNK
     Route: 065
  8. PENCICLOVIR [Concomitant]
     Active Substance: PENCICLOVIR
     Indication: Oral herpes
     Dosage: UNK
     Route: 065
  9. VITAMIN D NOS [Concomitant]
     Active Substance: CHOLECALCIFEROL\ERGOCALCIFEROL
     Indication: Product used for unknown indication
     Dosage: UNK
     Route: 065
  10. ZOVIRAX [Concomitant]
     Active Substance: ACYCLOVIR
     Indication: Oral herpes
     Dosage: UNK
     Route: 065
  11. PLEINVUE [Concomitant]
     Indication: Product used for unknown indication
     Dosage: UNK
     Route: 065

REACTIONS (35)
  - Pancreatitis [Not Recovered/Not Resolved]
  - Colitis ulcerative [Not Recovered/Not Resolved]
  - Arthropathy [Not Recovered/Not Resolved]
  - Faecal calprotectin [Not Recovered/Not Resolved]
  - Fatigue [Not Recovered/Not Resolved]
  - Rash papular [Not Recovered/Not Resolved]
  - Cough [Not Recovered/Not Resolved]
  - Feeling hot [Not Recovered/Not Resolved]
  - Influenza like illness [Not Recovered/Not Resolved]
  - Condition aggravated [Not Recovered/Not Resolved]
  - Headache [Not Recovered/Not Resolved]
  - Carpal tunnel syndrome [Not Recovered/Not Resolved]
  - Platelet count increased [Unknown]
  - Feeling abnormal [Unknown]
  - White blood cell count increased [Unknown]
  - Abdominal discomfort [Unknown]
  - Dehydration [Unknown]
  - Pollakiuria [Unknown]
  - Nasopharyngitis [Unknown]
  - Cholelithiasis [Not Recovered/Not Resolved]
  - Gastrointestinal disorder [Recovering/Resolving]
  - Sensory disturbance [Recovering/Resolving]
  - Hypoaesthesia [Recovering/Resolving]
  - Aphthous ulcer [Recovering/Resolving]
  - Oropharyngeal pain [Recovered/Resolved]
  - Gamma-glutamyltransferase increased [Recovered/Resolved]
  - Malaise [Recovered/Resolved]
  - Blood pressure increased [Recovered/Resolved]
  - Aspartate aminotransferase increased [Recovered/Resolved]
  - Diarrhoea [Recovered/Resolved]
  - Alopecia [Recovered/Resolved]
  - Vomiting [Recovered/Resolved]
  - Alanine aminotransferase increased [Recovered/Resolved]
  - Hypertension [Recovered/Resolved]
  - Extra dose administered [Unknown]

NARRATIVE: CASE EVENT DATE: 20201201
